FAERS Safety Report 4935248-0 (Version None)
Quarter: 2006Q1

REPORT INFORMATION
  Report Type: 
  Country: None (occurrence: None)
  Receive Date: 20060302
  Receipt Date: 20060217
  Transmission Date: 20060701
  Serious: Yes (Hospitalization)
  Sender: FDA-Public Use
  Company Number: US200602003798

PATIENT
  Age: 62 Year
  Sex: Male

DRUGS (2)
  1. HUMULIN 70/30 [Suspect]
     Dosage: SEE IMAGE
     Dates: start: 19980101
  2. HUMULIN 70/30 PEN (HUMULIN 70/30 PEN) PEN, DISPOSABLE [Concomitant]

REACTIONS (6)
  - CARDIAC FAILURE CONGESTIVE [None]
  - CORONARY ARTERY SURGERY [None]
  - HEART RATE DECREASED [None]
  - IMPAIRED HEALING [None]
  - NEUROPATHY PERIPHERAL [None]
  - PHARMACEUTICAL PRODUCT COMPLAINT [None]
